FAERS Safety Report 23502549 (Version 1)
Quarter: 2024Q1

REPORT INFORMATION
  Report Type: Spontaneous
  Country: US (occurrence: US)
  Receive Date: 20240208
  Receipt Date: 20240208
  Transmission Date: 20240410
  Serious: No
  Sender: FDA-Public Use
  Company Number: US-INTRA-CELLULAR THERAPIES, INC.-2023ICT00549

PATIENT
  Sex: Female

DRUGS (5)
  1. CAPLYTA [Suspect]
     Active Substance: LUMATEPERONE
     Indication: Bipolar disorder
     Dosage: 42 MG, 1X/DAY
     Route: 048
  2. CAPLYTA [Suspect]
     Active Substance: LUMATEPERONE
     Dosage: 42 MG, 1X/DAY
     Route: 048
  3. LITHIUM [Concomitant]
     Active Substance: LITHIUM
  4. ZYPREXA [Concomitant]
     Active Substance: OLANZAPINE
     Dosage: 2.5 MG
  5. ZYPREXA [Concomitant]
     Active Substance: OLANZAPINE
     Dosage: 5 MG

REACTIONS (3)
  - Mania [Unknown]
  - Akathisia [Unknown]
  - Unevaluable event [Unknown]
